FAERS Safety Report 12104079 (Version 1)
Quarter: 2016Q1

REPORT INFORMATION
  Report Type: Spontaneous
  Country: GB (occurrence: GB)
  Receive Date: 20160223
  Receipt Date: 20160223
  Transmission Date: 20160526
  Serious: Yes (Other)
  Sender: FDA-Public Use
  Company Number: GB-ACCORD-038012

PATIENT
  Age: 67 Year
  Sex: Male

DRUGS (3)
  1. FLUOROURACIL. [Suspect]
     Active Substance: FLUOROURACIL
     Indication: LINITIS PLASTICA
     Dosage: RECEIVED AS ADJUVANT ECF CHEMOTHERAPY (3 + 2 CYCLES)
  2. CISPLATIN. [Concomitant]
     Active Substance: CISPLATIN
     Indication: LINITIS PLASTICA
     Dosage: RECEIVED AS ADJUVANT ECF CHEMOTHERAPY (3 + 2 CYCLES).
  3. EPIRUBICIN [Concomitant]
     Active Substance: EPIRUBICIN
     Indication: LINITIS PLASTICA
     Dosage: RECEIVED AS ADJUVANT ECF CHEMOTHERAPY (3 + 2 CYCLES).

REACTIONS (1)
  - Coronary artery disease [Unknown]
